FAERS Safety Report 16242178 (Version 2)
Quarter: 2019Q2

REPORT INFORMATION
  Report Type: Report from Study
  Country: DK (occurrence: DK)
  Receive Date: 20190426
  Receipt Date: 20190530
  Transmission Date: 20190711
  Serious: Yes (Hospitalization)
  Sender: FDA-Public Use
  Company Number: DK-ROCHE-2294386

PATIENT
  Age: 74 Year
  Sex: Male
  Weight: 81.9 kg

DRUGS (3)
  1. VENETOCLAX. [Suspect]
     Active Substance: VENETOCLAX
     Indication: DIFFUSE LARGE B-CELL LYMPHOMA
     Dosage: DATE OF MOST RECENT VENETOCLAX PRIOR TO THE ONSET OF INFECTION: 25/MAR/2019 AT 11:15 (600 MG)
     Route: 048
     Dates: start: 20190305
  2. RO6870810 (BET INHIBITOR) [Suspect]
     Active Substance: RO-6870810
     Indication: DIFFUSE LARGE B-CELL LYMPHOMA
     Dosage: DATE OF MOST RECENT DSOE OF RO 6870810 (BET INHIBITOR) ADMINISTERED PRIOR TO THE ONSET OF INFECTION:
     Route: 058
     Dates: start: 20190305
  3. RITUXIMAB. [Suspect]
     Active Substance: RITUXIMAB
     Indication: DIFFUSE LARGE B-CELL LYMPHOMA
     Dosage: WEEKLY DURING THE FIRST 21-DAY CYCLE (C1) AND ON DAY 1 OF EACH CYCLE THEREAFTER?DATE OF MOST RECENT
     Route: 065
     Dates: start: 20190312

REACTIONS (1)
  - Diverticulitis [Not Recovered/Not Resolved]

NARRATIVE: CASE EVENT DATE: 20190326
